FAERS Safety Report 9321748 (Version 1)
Quarter: 2013Q2

REPORT INFORMATION
  Report Type: Spontaneous
  Country: US (occurrence: None)
  Receive Date: 20130528
  Receipt Date: 20130528
  Transmission Date: 20140414
  Serious: Yes (Other)
  Sender: FDA-Public Use
  Company Number: UTC-033106

PATIENT
  Age: 67 Year
  Sex: Female
  Weight: 84.5 kg

DRUGS (7)
  1. TYVASO [Suspect]
     Indication: PULMONARY ARTERIAL HYPERTENSION
     Dosage: (4 IN 1 D), INHALATION
  2. REVATIO [Suspect]
     Indication: PULMONARY ARTERIAL HYPERTENSION
     Dosage: (3 IN 1 D), ORAL
     Route: 048
     Dates: start: 2012
  3. TOPROL (METOPROLOL SUCCINATE) (UNKNOWN) [Concomitant]
  4. FUROSEMIDE (TABLET) [Concomitant]
  5. SPIRONOLACTONE (UNKNOWN) [Concomitant]
  6. RYTHMOL SR (PROPAFENONE) (UNKNOWN) [Concomitant]
  7. WARFARIN (UNKNOWN) [Concomitant]

REACTIONS (4)
  - International normalised ratio increased [None]
  - Adverse drug reaction [None]
  - Drug level above therapeutic [None]
  - Plasma viscosity decreased [None]
